FAERS Safety Report 4592582-4 (Version None)
Quarter: 2005Q1

REPORT INFORMATION
  Report Type: 
  Country: None (occurrence: None)
  Receive Date: 20050228
  Receipt Date: 20050221
  Transmission Date: 20050727
  Serious: Yes (Hospitalization, Other)
  Sender: FDA-Public Use
  Company Number: 200510465EU

PATIENT
  Age: 67 Year
  Sex: Female

DRUGS (9)
  1. OPTIPEN (INSULIN PUMP) [Suspect]
  2. CODE UNBROKEN [Suspect]
     Indication: DIABETES MELLITUS NON-INSULIN-DEPENDENT
     Dates: start: 20041117
  3. PERINDOPRIL [Concomitant]
     Indication: CARDIAC FAILURE CONGESTIVE
     Dates: start: 20040601
  4. CO-AMILOFRUSE [Concomitant]
     Indication: CARDIAC FAILURE CONGESTIVE
     Dates: start: 20040901
  5. CLOPIDOGREL [Concomitant]
     Dates: start: 20040801
  6. PRAVASTATIN [Concomitant]
     Indication: HYPERCHOLESTEROLAEMIA
     Dates: start: 20040801
  7. ASPIRIN [Concomitant]
     Dates: start: 20050201
  8. DIAZEPAM [Concomitant]
  9. HALCION [Concomitant]

REACTIONS (4)
  - ABNORMAL BEHAVIOUR [None]
  - CEREBRAL DISORDER [None]
  - HYPOGLYCAEMIA [None]
  - HYPOMANIA [None]
